FAERS Safety Report 7250418-7 (Version None)
Quarter: 2011Q1

REPORT INFORMATION
  Report Type: 
  Country: None (occurrence: None)
  Receive Date: 20110128
  Receipt Date: 20110119
  Transmission Date: 20110831
  Serious: Yes (Disabling)
  Sender: FDA-Public Use
  Company Number: AT-ROCHE-754178

PATIENT
  Age: 62 Year
  Sex: Male
  Weight: 81 kg

DRUGS (30)
  1. AVASTIN [Suspect]
     Route: 065
     Dates: start: 20100902
  2. AVASTIN [Suspect]
     Route: 065
     Dates: start: 20101104
  3. GEMZAR [Concomitant]
     Route: 065
     Dates: start: 20100528
  4. GEMZAR [Concomitant]
     Route: 065
     Dates: start: 20100610
  5. GEMZAR [Concomitant]
     Route: 065
     Dates: start: 20100709
  6. GEMZAR [Concomitant]
     Route: 065
     Dates: start: 20100722
  7. AVASTIN [Suspect]
     Route: 065
     Dates: start: 20101125
  8. CISPLATIN [Concomitant]
     Route: 065
     Dates: start: 20100610
  9. CISPLATIN [Concomitant]
     Route: 065
     Dates: start: 20100812
  10. AVASTIN [Suspect]
     Route: 065
     Dates: start: 20100701
  11. CISPLATIN [Concomitant]
     Route: 065
     Dates: start: 20100701
  12. CISPLATIN [Concomitant]
     Route: 065
     Dates: start: 20100722
  13. GEMZAR [Concomitant]
     Route: 065
     Dates: start: 20100910
  14. AVASTIN [Suspect]
     Route: 065
     Dates: start: 20100923
  15. GEMZAR [Concomitant]
     Route: 065
     Dates: start: 20100618
  16. GEMZAR [Concomitant]
     Route: 065
     Dates: start: 20100701
  17. GEMZAR [Concomitant]
     Route: 065
     Dates: start: 20100730
  18. GEMZAR [Concomitant]
     Route: 065
     Dates: start: 20100812
  19. GEMZAR [Concomitant]
     Route: 065
     Dates: start: 20100520
  20. AVASTIN [Suspect]
     Indication: BRONCHIAL NEOPLASM
     Route: 065
     Dates: start: 20100520
  21. AVASTIN [Suspect]
     Route: 065
     Dates: start: 20100610
  22. AVASTIN [Suspect]
     Route: 065
     Dates: start: 20101014
  23. CISPLATIN [Concomitant]
     Route: 065
     Dates: start: 20100520
  24. GEMZAR [Concomitant]
     Route: 065
     Dates: start: 20100902
  25. AVASTIN [Suspect]
     Route: 065
     Dates: start: 20100722
  26. AVASTIN [Suspect]
     Route: 065
     Dates: start: 20100812
  27. CISPLATIN [Concomitant]
     Route: 065
     Dates: start: 20100902
  28. GEMZAR [Concomitant]
     Route: 065
     Dates: start: 20100820
  29. ACECOMB [Concomitant]
     Dosage: DOSE: 1-0-0
     Dates: start: 20100929
  30. GLUCOPHAGE [Concomitant]
     Dosage: DOSE: 1-0-1

REACTIONS (1)
  - TOOTH LOSS [None]
